FAERS Safety Report 8955893 (Version 1)
Quarter: 2012Q4

REPORT INFORMATION
  Report Type: 
  Country: BR (occurrence: BR)
  Receive Date: 20121210
  Receipt Date: 20121210
  Transmission Date: 20130627
  Serious: Yes (Hospitalization)
  Sender: FDA-Public Use
  Company Number: BR-PFIZER INC-2012306440

PATIENT
  Age: 73 Year
  Sex: Female

DRUGS (1)
  1. FRONTAL [Suspect]
     Indication: ANXIETY
     Dosage: 1 mg, alternate day
     Route: 048
     Dates: start: 2006

REACTIONS (2)
  - Cardiac disorder [Unknown]
  - Anxiety [Unknown]
